FAERS Safety Report 22299328 (Version 1)
Quarter: 2023Q2

REPORT INFORMATION
  Report Type: Spontaneous
  Country: US (occurrence: US)
  Receive Date: 20230509
  Receipt Date: 20230509
  Transmission Date: 20230722
  Serious: No
  Sender: FDA-Public Use
  Company Number: US-PFIZER INC-PV202300081980

PATIENT

DRUGS (1)
  1. TAFAMIDIS [Suspect]
     Active Substance: TAFAMIDIS
     Indication: Amyloidosis
     Dosage: UNK

REACTIONS (2)
  - Lacrimation increased [Not Recovered/Not Resolved]
  - Blepharitis [Not Recovered/Not Resolved]
